FAERS Safety Report 11221787 (Version 5)
Quarter: 2016Q3

REPORT INFORMATION
  Report Type: Spontaneous
  Country: US (occurrence: US)
  Receive Date: 20150626
  Receipt Date: 20160815
  Transmission Date: 20161109
  Serious: Yes (Hospitalization, Other)
  Sender: FDA-Public Use
  Company Number: US-009507513-1506USA009509

PATIENT
  Sex: Female

DRUGS (3)
  1. ALENDRONATE SODIUM. [Suspect]
     Active Substance: ALENDRONATE SODIUM
     Indication: OSTEOPOROSIS
     Dosage: 70 MG, QW
     Route: 048
     Dates: start: 20080216, end: 201107
  2. FOSAMAX [Suspect]
     Active Substance: ALENDRONATE SODIUM
     Indication: OSTEOPOROSIS
  3. FOSAMAX [Suspect]
     Active Substance: ALENDRONATE SODIUM
     Indication: OSTEOPENIA
     Dosage: 70 MG, QW
     Route: 048
     Dates: start: 200204, end: 20080418

REACTIONS (12)
  - Haemoglobin decreased [Unknown]
  - Ankle fracture [Unknown]
  - Glaucoma [Unknown]
  - Fear [Unknown]
  - Pain [Unknown]
  - Fibrosis [Unknown]
  - Fibula fracture [Recovering/Resolving]
  - Hepatic steatosis [Unknown]
  - Osteopenia [Unknown]
  - Herpes zoster [Unknown]
  - Arthritis [Unknown]
  - Femur fracture [Recovered/Resolved]

NARRATIVE: CASE EVENT DATE: 20061202
